FAERS Safety Report 4519512-5 (Version None)
Quarter: 2004Q4

REPORT INFORMATION
  Report Type: 
  Country: None (occurrence: None)
  Receive Date: 20041101
  Receipt Date: 20040520
  Transmission Date: 20050328
  Serious: Yes (Other)
  Sender: FDA-Public Use
  Company Number: HQWYE108225MAY04

PATIENT
  Age: 55 Year
  Sex: Female
  Weight: 49.94 kg

DRUGS (2)
  1. PREMARIN [Suspect]
     Indication: HOT FLUSH
     Dosage: 0.625 MG DAILY, ORAL
     Route: 048
  2. MULTIVITAMINS, PLAIN (MULTIVITAMINS, PLAIN) [Concomitant]

REACTIONS (8)
  - DIARRHOEA [None]
  - ENDOMETRIAL HYPERPLASIA [None]
  - FATIGUE [None]
  - HAIR TEXTURE ABNORMAL [None]
  - INSOMNIA [None]
  - MALAISE [None]
  - MOOD ALTERED [None]
  - NAUSEA [None]
